FAERS Safety Report 12900576 (Version 1)
Quarter: 2016Q4

REPORT INFORMATION
  Report Type: Spontaneous
  Country: GB (occurrence: GB)
  Receive Date: 20161101
  Receipt Date: 20161101
  Transmission Date: 20170207
  Serious: Yes (Hospitalization)
  Sender: FDA-Public Use
  Company Number: GB-TEVA-707266ACC

PATIENT
  Age: 83 Year
  Sex: Male
  Weight: 100.2 kg

DRUGS (20)
  1. XYLOCAINE [Concomitant]
     Active Substance: LIDOCAINE HYDROCHLORIDE
     Indication: LOCAL ANAESTHESIA
  2. DICLOFENAC [Concomitant]
     Active Substance: DICLOFENAC
     Dosage: APPLY 3-4 TIMES DAILY
     Route: 061
  3. ENALAPRIL [Concomitant]
     Active Substance: ENALAPRIL
     Dosage: 40 MILLIGRAM DAILY;
     Route: 048
  4. LERCANIDIPINE [Concomitant]
     Active Substance: LERCANIDIPINE
     Dosage: 10 MILLIGRAM DAILY;
     Route: 048
  5. PARACETAMOL [Concomitant]
     Active Substance: ACETAMINOPHEN
     Dosage: 500MG-1G EVERY 4-6 HOURS UP TO FOUR TIMES A DAY
     Route: 048
  6. PREGABALIN. [Concomitant]
     Active Substance: PREGABALIN
     Dosage: 150 MILLIGRAM DAILY;
     Route: 048
  7. ASPIRIN. [Suspect]
     Active Substance: ASPIRIN
     Dosage: 75 MILLIGRAM DAILY;
     Route: 048
     Dates: end: 20160922
  8. SODIUM BICARBONATE. [Concomitant]
     Active Substance: SODIUM BICARBONATE
     Dosage: 1000 MILLIGRAM DAILY;
     Route: 048
  9. LIGNOSPAN [Concomitant]
     Indication: LOCAL ANAESTHESIA
  10. PROXYMETACAINE [Concomitant]
     Indication: LOCAL ANAESTHESIA
     Dosage: ORODISPERSIBLE TABLET
     Route: 047
  11. FUROSEMIDE. [Suspect]
     Active Substance: FUROSEMIDE
     Dosage: 40 MILLIGRAM DAILY; IN THE MORNING
     Route: 048
     Dates: start: 20160724
  12. CONOTRANE [Concomitant]
     Dosage: APPLY TO AFFECTED AREA REGULARLY
     Route: 061
  13. URSODEOXYCHOLIC ACID [Concomitant]
     Active Substance: URSODIOL
     Dosage: 750 MILLIGRAM DAILY;
     Route: 048
  14. SIMVASTATIN. [Suspect]
     Active Substance: SIMVASTATIN
     Dosage: 20 MILLIGRAM DAILY; AT NIGHT
     Route: 048
  15. INSULATARD PORCINE [Concomitant]
     Dosage: 69 UNITS AT 11AM AND 15 UNITS AT 9PM. 100UNITS/ML
     Route: 058
  16. DOXAZOSIN [Concomitant]
     Active Substance: DOXAZOSIN\DOXAZOSIN MESYLATE
     Dosage: 3 MILLIGRAM DAILY; AT NIGHT
     Route: 048
  17. ALFACALCIDOL [Concomitant]
     Active Substance: ALFACALCIDOL
     Dosage: 500 NANOGRAM DAILY;
     Route: 048
  18. ALLOPURINOL. [Concomitant]
     Active Substance: ALLOPURINOL
     Dosage: 50 MILLIGRAM DAILY;
     Route: 048
  19. AMOXICILLIN. [Suspect]
     Active Substance: AMOXICILLIN
     Indication: LOWER RESPIRATORY TRACT INFECTION
     Dosage: 1500 MILLIGRAM DAILY;
     Route: 048
     Dates: start: 20160920, end: 20160922
  20. NICORANDIL [Concomitant]
     Active Substance: NICORANDIL
     Dosage: 20 MILLIGRAM DAILY;
     Route: 048

REACTIONS (4)
  - Anaemia [Unknown]
  - Procedural haemorrhage [Recovered/Resolved]
  - Contusion [Unknown]
  - Immune thrombocytopenic purpura [Recovering/Resolving]

NARRATIVE: CASE EVENT DATE: 20160922
